FAERS Safety Report 4685581-5 (Version None)
Quarter: 2005Q2

REPORT INFORMATION
  Report Type: 
  Country: None (occurrence: None)
  Receive Date: 20050608
  Receipt Date: 20050607
  Transmission Date: 20051028
  Serious: Yes (Death, Hospitalization)
  Sender: FDA-Public Use
  Company Number: US-BRISTOL-MYERS SQUIBB COMPANY-12996021

PATIENT
  Age: 78 Year
  Sex: Female
  Weight: 92 kg

DRUGS (15)
  1. CARBOPLATIN [Suspect]
     Indication: NON-SMALL CELL LUNG CANCER
     Route: 042
     Dates: start: 20050418, end: 20050418
  2. GEMCITABINE HCL [Suspect]
     Indication: NON-SMALL CELL LUNG CANCER
     Route: 042
     Dates: start: 20050425, end: 20050425
  3. OXYGEN [Concomitant]
  4. ANZEMET [Concomitant]
     Indication: PROPHYLACTIC CHEMOTHERAPY
     Route: 042
  5. DECADRON [Concomitant]
     Indication: PROPHYLACTIC CHEMOTHERAPY
     Route: 042
  6. ACTONEL [Concomitant]
  7. LEVOTHYROXINE SODIUM [Concomitant]
  8. PRAVACHOL [Concomitant]
  9. PREVACID [Concomitant]
  10. PINDOLOL [Concomitant]
  11. FUROSEMIDE [Concomitant]
  12. COMPAZINE [Concomitant]
  13. LORAZEPAM [Concomitant]
  14. OXYCODONE HCL [Concomitant]
  15. ACETAMINOPHEN [Concomitant]

REACTIONS (5)
  - FUNGAEMIA [None]
  - NEUTROPENIC SEPSIS [None]
  - PLATELET COUNT DECREASED [None]
  - RESPIRATORY FAILURE [None]
  - STREPTOCOCCAL SEPSIS [None]
